FAERS Safety Report 8789945 (Version 2)
Quarter: 2012Q4

REPORT INFORMATION
  Report Type: 
  Country: PH (occurrence: PH)
  Receive Date: 20120917
  Receipt Date: 20120917
  Transmission Date: 20130627
  Serious: Yes (Other)
  Sender: FDA-Public Use
  Company Number: PH-009507513-1208PHL010091

PATIENT

DRUGS (1)
  1. ALENDRONATE SODIUM\CHOLECALCIFEROL [Suspect]

REACTIONS (1)
  - Atypical femur fracture [Unknown]
